FAERS Safety Report 25668971 (Version 1)
Quarter: 2025Q3

REPORT INFORMATION
  Report Type: Report from Study
  Country: US (occurrence: US)
  Receive Date: 20250812
  Receipt Date: 20250812
  Transmission Date: 20251020
  Serious: No
  Sender: SUNOVION
  Company Number: US-SUMITOMO PHARMA SWITZERLAND GMBH-2025SPA007885

PATIENT
  Age: 78 Year
  Sex: Male

DRUGS (2)
  1. ORGOVYX [Suspect]
     Active Substance: RELUGOLIX
     Indication: Prostate cancer
     Route: 048
  2. ORGOVYX [Suspect]
     Active Substance: RELUGOLIX
     Route: 048

REACTIONS (8)
  - Urinary incontinence [Unknown]
  - Full blood count abnormal [Unknown]
  - Vitamin B12 abnormal [Unknown]
  - White blood cell count decreased [Unknown]
  - Myalgia [Unknown]
  - Hot flush [Unknown]
  - Asthenia [Unknown]
  - Red blood cell count decreased [Unknown]
